FAERS Safety Report 6914053-X (Version None)
Quarter: 2010Q3

REPORT INFORMATION
  Report Type: 
  Country: None (occurrence: None)
  Receive Date: 20100809
  Receipt Date: 20100803
  Transmission Date: 20110219
  Serious: Yes (Death, Hospitalization)
  Sender: FDA-Public Use
  Company Number: PHHY2010GB25450

PATIENT
  Sex: Male

DRUGS (2)
  1. CLOZARIL [Suspect]
     Indication: SCHIZOPHRENIA
     Dosage: UNK
     Route: 048
     Dates: start: 19970319
  2. CLOZARIL [Suspect]
     Dosage: 150 MG MORNING AND 200 MG NIGHT
     Dates: start: 19970519

REACTIONS (10)
  - BLOOD CHOLESTEROL INCREASED [None]
  - CHEST PAIN [None]
  - GENERAL PHYSICAL HEALTH DETERIORATION [None]
  - LOWER RESPIRATORY TRACT INFECTION [None]
  - LUNG CANCER METASTATIC [None]
  - MALAISE [None]
  - METASTASES TO CENTRAL NERVOUS SYSTEM [None]
  - METASTASIS [None]
  - NEUTROPHIL COUNT INCREASED [None]
  - WHITE BLOOD CELL COUNT INCREASED [None]
